FAERS Safety Report 4777908-0 (Version None)
Quarter: 2005Q3

REPORT INFORMATION
  Report Type: 
  Country: None (occurrence: None)
  Receive Date: 20050921
  Receipt Date: 20050906
  Transmission Date: 20060218
  Serious: Yes (Other)
  Sender: FDA-Public Use
  Company Number: 12286

PATIENT
  Age: 64 Year
  Sex: Male

DRUGS (8)
  1. IRINOTECAN HCL [Suspect]
     Indication: METASTASES TO LUNG
     Dosage: 180 MG/M2 PER_CYCLE
  2. IRINOTECAN HCL [Suspect]
     Indication: NEOPLASM MALIGNANT
     Dosage: 180 MG/M2 PER_CYCLE
  3. LEUCOVORIN [Suspect]
     Indication: METASTASES TO LUNG
     Dosage: 200 MG/M2 PER_CYCLE
  4. LEUCOVORIN [Suspect]
     Indication: NEOPLASM MALIGNANT
     Dosage: 200 MG/M2 PER_CYCLE
  5. FLUOROURACIL [Suspect]
     Indication: METASTASES TO LUNG
     Dosage: 400 MG/M2 PER_CYCLE IV
     Route: 042
  6. FLUOROURACIL [Suspect]
     Indication: NEOPLASM MALIGNANT
     Dosage: 400 MG/M2 PER_CYCLE IV
     Route: 042
  7. FLUOROURACIL [Suspect]
     Indication: METASTASES TO LUNG
     Dosage: 600 MG/M2 PER_CYCLE IV
     Route: 042
  8. FLUOROURACIL [Suspect]
     Indication: NEOPLASM MALIGNANT
     Dosage: 600 MG/M2 PER_CYCLE IV
     Route: 042

REACTIONS (1)
  - HEPATITIS B [None]
